FAERS Safety Report 21854611 (Version 2)
Quarter: 2023Q1

REPORT INFORMATION
  Report Type: Spontaneous
  Country: PL (occurrence: PL)
  Receive Date: 20230112
  Receipt Date: 20230202
  Transmission Date: 20230418
  Serious: Yes (Life-Threatening)
  Sender: FDA-Public Use
  Company Number: None

PATIENT
  Age: 54 Year
  Sex: Male
  Weight: 78 kg

DRUGS (3)
  1. RISPERIDONE [Suspect]
     Active Substance: RISPERIDONE
     Indication: Product used for unknown indication
     Dates: start: 20210125, end: 20210125
  2. BETAXOLOL [Suspect]
     Active Substance: BETAXOLOL
     Indication: Product used for unknown indication
     Dates: start: 20210125, end: 20210125
  3. BIPERIDEN [Suspect]
     Active Substance: BIPERIDEN
     Indication: Product used for unknown indication
     Dates: start: 20210125, end: 20210125

REACTIONS (3)
  - Dizziness [Recovering/Resolving]
  - Suicide attempt [Recovering/Resolving]
  - Toxicity to various agents [Recovering/Resolving]
